FAERS Safety Report 22336821 (Version 1)
Quarter: 2023Q2

REPORT INFORMATION
  Report Type: Spontaneous
  Country: US (occurrence: None)
  Receive Date: 20230518
  Receipt Date: 20230518
  Transmission Date: 20230721
  Serious: No
  Sender: FDA-Public Use
  Company Number: US-ROCHE-3182986

PATIENT
  Age: 64 Year
  Sex: Male
  Weight: 90.8 kg

DRUGS (27)
  1. ACTEMRA [Suspect]
     Active Substance: TOCILIZUMAB
     Indication: Neoplasm malignant
     Route: 058
     Dates: start: 20220913
  2. ACTEMRA [Suspect]
     Active Substance: TOCILIZUMAB
  3. ACTEMRA [Suspect]
     Active Substance: TOCILIZUMAB
     Indication: Arthropathy
     Route: 058
     Dates: start: 20220831
  4. ACTEMRA [Suspect]
     Active Substance: TOCILIZUMAB
  5. ACTEMRA [Suspect]
     Active Substance: TOCILIZUMAB
     Indication: Diabetes mellitus
  6. ACTEMRA [Suspect]
     Active Substance: TOCILIZUMAB
  7. ACTEMRA [Suspect]
     Active Substance: TOCILIZUMAB
     Indication: Diabetic nephropathy
  8. ACTEMRA [Suspect]
     Active Substance: TOCILIZUMAB
  9. TAMSULIN [Concomitant]
     Dosage: TAKES AT BEDTIME; STARTED BEFORE ACTEMRA
     Route: 048
  10. DULOXETINE [Concomitant]
     Active Substance: DULOXETINE
     Indication: Depression
     Dosage: STARTED BEFORE ACTEMRA
     Route: 048
  11. PREGABALIN [Concomitant]
     Active Substance: PREGABALIN
     Indication: Neuropathy peripheral
     Dosage: (2) 100 MG CAPSULES IN THE MORNING; STARTED BEFORE ACTEMRA
     Route: 048
  12. PREGABALIN [Concomitant]
     Active Substance: PREGABALIN
     Dosage: TAKES IN THE EVENING; STARTED BEFORE ACTEMRA
     Route: 048
  13. OMEPRAZOLE [Concomitant]
     Active Substance: OMEPRAZOLE
     Indication: Gastrooesophageal reflux disease
     Dosage: TAKES IN THE MORNING; STARED BEFORE ACTEMRA
     Route: 048
  14. OMEPRAZOLE [Concomitant]
     Active Substance: OMEPRAZOLE
     Indication: Dyspepsia
  15. PREDNISONE [Concomitant]
     Active Substance: PREDNISONE
     Indication: Giant cell arteritis
     Dosage: STARTED BEFORE ACTEMRA
     Route: 048
  16. CLOPIDOGREL [Concomitant]
     Active Substance: CLOPIDOGREL BISULFATE
     Dosage: STARTED BEFORE ACTEMRA
     Route: 048
  17. FUROSEMIDE [Concomitant]
     Active Substance: FUROSEMIDE
     Dosage: (3) 10 MG TABLES; STARTED BEFORE ACTEMRA
     Route: 048
  18. METOPROLOL [Concomitant]
     Active Substance: METOPROLOL
     Dosage: STARTED BEFORE ACTEMRA
     Route: 048
  19. BUPROPION [Concomitant]
     Active Substance: BUPROPION
  20. LEVOTHYROXINE [Concomitant]
     Active Substance: LEVOTHYROXINE
  21. FOLIC ACID [Concomitant]
     Active Substance: FOLIC ACID
  22. ZYRTEC [Concomitant]
     Active Substance: CETIRIZINE HYDROCHLORIDE
  23. ASPIRIN [Concomitant]
     Active Substance: ASPIRIN
  24. IRON [Concomitant]
     Active Substance: IRON
  25. TRESIBA [Concomitant]
     Active Substance: INSULIN DEGLUDEC
  26. HUMULIN R [Concomitant]
     Active Substance: INSULIN HUMAN
  27. TRIAMCINOLONE [Concomitant]
     Active Substance: TRIAMCINOLONE

REACTIONS (5)
  - Off label use [Unknown]
  - Needle issue [Unknown]
  - Injection site pain [Recovered/Resolved]
  - Device leakage [Unknown]
  - Haemorrhage [Unknown]

NARRATIVE: CASE EVENT DATE: 20220831
